FAERS Safety Report 24629825 (Version 1)
Quarter: 2024Q4

REPORT INFORMATION
  Report Type: Spontaneous
  Country: JP (occurrence: JP)
  Receive Date: 20241118
  Receipt Date: 20241118
  Transmission Date: 20250114
  Serious: Yes (Disabling, Other)
  Sender: REGENERON
  Company Number: JP-BAYER-2024A162793

PATIENT
  Sex: Female

DRUGS (2)
  1. EYLEA [Suspect]
     Active Substance: AFLIBERCEPT
     Indication: Retinal vein occlusion
     Dosage: UNK, ONCE, 40 MG/ML, SOLUTION FOR INJECTION
     Route: 031
     Dates: start: 2023, end: 2023
  2. EYLEA [Suspect]
     Active Substance: AFLIBERCEPT
     Dosage: UNK, ONCE, 40 MG/ML, SOLUTION FOR INJECTION
     Route: 031
     Dates: start: 2023, end: 2023

REACTIONS (11)
  - Blindness unilateral [Unknown]
  - Visual acuity reduced [Unknown]
  - Eye paraesthesia [Unknown]
  - Speech disorder [Unknown]
  - Limb discomfort [Unknown]
  - Eye haemorrhage [Unknown]
  - Visual field defect [Unknown]
  - Vision blurred [Unknown]
  - Vitreous floaters [Unknown]
  - Ocular hyperaemia [Unknown]
  - Drug ineffective [Unknown]
